FAERS Safety Report 23279812 (Version 1)
Quarter: 2023Q4

REPORT INFORMATION
  Report Type: Spontaneous
  Country: NL (occurrence: NL)
  Receive Date: 20231209
  Receipt Date: 20231209
  Transmission Date: 20240109
  Serious: Yes (Hospitalization, Other)
  Sender: FDA-Public Use
  Company Number: None

PATIENT
  Age: 69 Year
  Sex: Female

DRUGS (6)
  1. QUETIAPINE [Suspect]
     Active Substance: QUETIAPINE
     Indication: Sleep disorder
     Dosage: UNK (I STARTED WITH A FULL TABLET)
     Route: 065
  2. QUETIAPINE [Suspect]
     Active Substance: QUETIAPINE
     Dosage: UNK (A LITTLE BIT LESS THAN HALF A TABLET, MAYBE JUST A QUARTER)
     Route: 065
  3. TRANYLCYPROMINE SULFATE [Suspect]
     Active Substance: TRANYLCYPROMINE SULFATE
     Dosage: 2 DOSAGE FORM (PATIENT WAS ONCE DISCHARGED FROM HOSPITAL WITH TWO TABLETS)
     Route: 065
  4. TRANYLCYPROMINE SULFATE [Suspect]
     Active Substance: TRANYLCYPROMINE SULFATE
     Dosage: 2.5 DOSAGE FORM, QD (2.5 TABLETS TOTAL PER DAY; 1.5 TABLET IN THE MORNING AROUND 9:00 AM AND 1 TABLE
     Route: 048
  5. TRANYLCYPROMINE SULFATE [Suspect]
     Active Substance: TRANYLCYPROMINE SULFATE
     Indication: Depression
     Dosage: STARTED LAST YEAR AROUND THE END OF MAY
     Route: 065
     Dates: start: 202205
  6. EUTHYROX [Concomitant]
     Active Substance: LEVOTHYROXINE SODIUM
     Indication: Hypothyroidism
     Dosage: UNK
     Route: 065

REACTIONS (5)
  - Depression [Recovered/Resolved]
  - Hypertensive crisis [Recovered/Resolved]
  - Food interaction [Not Recovered/Not Resolved]
  - Blood pressure systolic increased [Not Recovered/Not Resolved]
  - Contraindicated product administered [Not Recovered/Not Resolved]
